FAERS Safety Report 5801505-9 (Version None)
Quarter: 2008Q3

REPORT INFORMATION
  Report Type: 
  Country: None (occurrence: None)
  Receive Date: 20080707
  Receipt Date: 20080626
  Transmission Date: 20090109
  Serious: Yes (Hospitalization)
  Sender: FDA-Public Use
  Company Number: US-ROCHE-573102

PATIENT
  Sex: Female

DRUGS (4)
  1. PEGASYS [Suspect]
     Route: 065
     Dates: start: 20080501, end: 20080620
  2. RIBAVIRIN [Suspect]
     Route: 065
     Dates: start: 20080501, end: 20080620
  3. HERBAL EXTRACTS NOS [Suspect]
     Indication: DRUG USE FOR UNKNOWN INDICATION
     Dosage: DRUG REPORTED AS BRONCHORIL
     Route: 065
  4. ZOLOFT [Concomitant]
     Indication: ANTIDEPRESSANT THERAPY

REACTIONS (3)
  - ALCOHOL USE [None]
  - HEPATIC CIRRHOSIS [None]
  - PLATELET COUNT DECREASED [None]
